FAERS Safety Report 4316085-7 (Version None)
Quarter: 2004Q1

REPORT INFORMATION
  Report Type: 
  Country: None (occurrence: None)
  Receive Date: 20040310
  Receipt Date: 20040223
  Transmission Date: 20041129
  Serious: Yes (Death, Hospitalization)
  Sender: FDA-Public Use
  Company Number: 104060ISR

PATIENT
  Age: 52 Year
  Sex: Female

DRUGS (3)
  1. DOXORUBICIN HCL [Suspect]
     Indication: MULTIPLE MYELOMA
     Dosage: 18 MILLIGRAM INTRAVENOUS (NOS)
     Route: 042
     Dates: start: 20031210, end: 20031213
  2. VINCRISTINE [Suspect]
     Dosage: 0.4 MILLIGRAM INTRAVENOUS (NOS)
     Route: 042
     Dates: start: 20031210, end: 20031213
  3. DEXAMETHASONE [Concomitant]

REACTIONS (5)
  - ANAEMIA [None]
  - BACK PAIN [None]
  - LEUKOPENIA [None]
  - SEPSIS [None]
  - STAPHYLOCOCCAL INFECTION [None]
